FAERS Safety Report 17654771 (Version 1)
Quarter: 2020Q2

REPORT INFORMATION
  Report Type: Spontaneous
  Country: US (occurrence: US)
  Receive Date: 20200410
  Receipt Date: 20200410
  Transmission Date: 20200713
  Serious: Yes (Other)
  Sender: FDA-Public Use
  Company Number: US-TEVA-2020-US-1219822

PATIENT
  Age: 67 Year
  Sex: Female

DRUGS (1)
  1. LAMOTRIGINE. [Suspect]
     Active Substance: LAMOTRIGINE
     Route: 065

REACTIONS (6)
  - Epilepsy [Unknown]
  - Fatigue [Unknown]
  - Hypothyroidism [Unknown]
  - Peripheral pulse decreased [Unknown]
  - Aura [Unknown]
  - Focal dyscognitive seizures [Unknown]
